FAERS Safety Report 6745630-7 (Version None)
Quarter: 2010Q2

REPORT INFORMATION
  Report Type: 
  Country: None (occurrence: None)
  Receive Date: 20100526
  Receipt Date: 20100526
  Transmission Date: 20101027
  Serious: Yes (Disabling)
  Sender: FDA-Public Use
  Company Number: None

PATIENT
  Sex: Male
  Weight: 113.4 kg

DRUGS (1)
  1. TAXUS LIBERTE [Suspect]

REACTIONS (2)
  - VASCULAR GRAFT [None]
  - VENOUS THROMBOSIS [None]
